FAERS Safety Report 5214721-4 (Version None)
Quarter: 2007Q1

REPORT INFORMATION
  Report Type: 
  Country: None (occurrence: None)
  Receive Date: 20070122
  Receipt Date: 20070109
  Transmission Date: 20070707
  Serious: Yes (Disabling)
  Sender: FDA-Public Use
  Company Number: GB-ELI_LILLY_AND_COMPANY-GB200701001568

PATIENT
  Sex: Female

DRUGS (6)
  1. EVISTA [Suspect]
     Dosage: 60 MG, DAILY (1/D)
     Dates: start: 20020101
  2. BENDROFLUMETHIAZIDE [Concomitant]
     Dosage: 2.5 MG, DAILY (1/D)
  3. ATENOLOL [Concomitant]
     Dosage: 50 MG, DAILY (1/D)
  4. LIPITOR [Concomitant]
     Dosage: 20 MG, DAILY (1/D)
  5. RANITIDINE [Concomitant]
     Dosage: 150 MG, DAILY (1/D)
  6. RAMIPRIL [Concomitant]
     Dosage: 2.5 MG, DAILY (1/D)
     Dates: start: 20070101

REACTIONS (1)
  - BACK PAIN [None]
